FAERS Safety Report 6896978-7 (Version None)
Quarter: 2010Q3

REPORT INFORMATION
  Report Type: 
  Country: None (occurrence: None)
  Receive Date: 20100802
  Receipt Date: 20070516
  Transmission Date: 20110219
  Serious: No
  Sender: FDA-Public Use
  Company Number: US-PFIZER INC-2006133881

PATIENT
  Sex: Male
  Weight: 102.06 kg

DRUGS (8)
  1. LYRICA [Suspect]
     Indication: NEUROPATHY PERIPHERAL
     Route: 048
     Dates: start: 20060710
  2. CRESTOR [Concomitant]
  3. PLAVIX [Concomitant]
  4. COREG [Concomitant]
  5. TAMSULOSIN HYDROCHLORIDE [Concomitant]
  6. ALLOPURINOL [Concomitant]
  7. DYAZIDE [Concomitant]
  8. VITAMINS [Concomitant]

REACTIONS (2)
  - DIARRHOEA [None]
  - DRUG INEFFECTIVE [None]
